FAERS Safety Report 22278144 (Version 1)
Quarter: 2023Q2

REPORT INFORMATION
  Report Type: Report from Study
  Country: CA (occurrence: CA)
  Receive Date: 20230503
  Receipt Date: 20230503
  Transmission Date: 20230721
  Serious: Yes (Hospitalization)
  Sender: FDA-Public Use
  Company Number: CA-TAKEDA-2022TUS072886

PATIENT
  Age: 19 Year
  Sex: Female

DRUGS (2)
  1. HUMAN IMMUNOGLOBULIN G [Suspect]
     Active Substance: HUMAN IMMUNOGLOBULIN G
     Indication: Autonomic nervous system imbalance
     Dosage: 15 GRAM, 1/WEEK
     Route: 058
     Dates: start: 20221006
  2. HUMAN IMMUNOGLOBULIN G [Suspect]
     Active Substance: HUMAN IMMUNOGLOBULIN G
     Dosage: 15 GRAM, 1/WEEK
     Route: 058
     Dates: start: 20221006

REACTIONS (5)
  - COVID-19 [Recovering/Resolving]
  - Heart rate increased [Unknown]
  - Urinary tract infection [Unknown]
  - Fungal infection [Unknown]
  - Off label use [Unknown]

NARRATIVE: CASE EVENT DATE: 20221001
